FAERS Safety Report 9543777 (Version 4)
Quarter: 2014Q2

REPORT INFORMATION
  Report Type: Spontaneous
  Country: US (occurrence: US)
  Receive Date: 20130923
  Receipt Date: 20140523
  Transmission Date: 20141212
  Serious: Yes (Other)
  Sender: FDA-Public Use
  Company Number: US-BAYER-2013-114544

PATIENT
  Age: 23 Year
  Sex: Female
  Weight: 81.63 kg

DRUGS (1)
  1. MIRENA [Suspect]
     Indication: CONTRACEPTION
     Dosage: 20 MCG/24HR, CONT
     Route: 015
     Dates: start: 200809, end: 20111112

REACTIONS (14)
  - Uterine perforation [None]
  - Pelvic pain [None]
  - Abdominal pain [None]
  - Injury [None]
  - Emotional distress [None]
  - Device dislocation [None]
  - Pelvic adhesions [None]
  - Depression [None]
  - Anxiety [None]
  - Mental disorder [None]
  - Infertility female [None]
  - Psychological trauma [None]
  - Emotional disorder [None]
  - Scar [None]
